FAERS Safety Report 5371485-1 (Version None)
Quarter: 2007Q2

REPORT INFORMATION
  Report Type: 
  Country: None (occurrence: None)
  Receive Date: 20070626
  Receipt Date: 20070618
  Transmission Date: 20071010
  Serious: Yes (Hospitalization)
  Sender: FDA-Public Use
  Company Number: JP-ABBOTT-05P-087-0304778-00

PATIENT
  Sex: Male

DRUGS (13)
  1. KALETRA [Suspect]
     Indication: HIV INFECTION
     Route: 048
     Dates: start: 20040927, end: 20061225
  2. KALETRA [Suspect]
     Indication: HIV INFECTION
     Route: 048
     Dates: start: 20061226
  3. ZIDOVUDINE [Suspect]
     Indication: HIV INFECTION
     Route: 048
     Dates: start: 20030707, end: 20040328
  4. ZIDOVUDINE [Suspect]
     Dates: start: 20041220
  5. LAMIVUDINE [Suspect]
     Indication: HIV INFECTION
     Route: 048
     Dates: start: 20030707
  6. STAVUDINE [Suspect]
     Indication: HIV INFECTION
     Route: 048
     Dates: start: 20040329, end: 20041220
  7. NELFINAVIR [Suspect]
     Indication: HIV INFECTION
     Route: 048
     Dates: start: 20030707, end: 20040926
  8. FLOMOXEF SODIUM [Suspect]
     Indication: THERAPEUTIC EMBOLISATION
     Route: 042
     Dates: start: 20061213, end: 20061213
  9. URSODIOL [Concomitant]
     Indication: HEPATITIS C
     Route: 048
     Dates: start: 20061108
  10. GLYCYRON [Concomitant]
     Indication: HEPATITIS C
     Route: 048
     Dates: start: 20061108
  11. AMINO ACID PREPARATIONS FOR HEPATIC CIRRHOSIS [Concomitant]
     Indication: HYPOALBUMINAEMIA
     Route: 048
     Dates: start: 20061122
  12. FOSFOMYCIN [Concomitant]
     Indication: THERAPEUTIC EMBOLISATION
     Route: 042
     Dates: start: 20061213, end: 20061222
  13. FOSFOMYCIN [Concomitant]
     Route: 042
     Dates: start: 20070326, end: 20070328

REACTIONS (3)
  - ANAEMIA [None]
  - DRUG ERUPTION [None]
  - HEPATIC NEOPLASM MALIGNANT [None]
